FAERS Safety Report 21738114 (Version 3)
Quarter: 2022Q4

REPORT INFORMATION
  Report Type: Report from Study
  Country: US (occurrence: US)
  Receive Date: 20221216
  Receipt Date: 20221220
  Transmission Date: 20230112
  Serious: Yes (Hospitalization)
  Sender: FDA-Public Use
  Company Number: US-JNJFOC-20221225385

PATIENT
  Age: 11 Year
  Sex: Male
  Weight: 34.2 kg

DRUGS (14)
  1. INFLIXIMAB [Suspect]
     Active Substance: INFLIXIMAB
     Indication: Inflammatory bowel disease
     Route: 041
     Dates: start: 20161012
  2. FLUTICASONE [Concomitant]
     Active Substance: FLUTICASONE
  3. CIPROHEPTADINA [CYPROHEPTADINE HYDROCHLORIDE] [Concomitant]
  4. FOLIC ACID [Concomitant]
     Active Substance: FOLIC ACID
  5. KETOCONAZOLE [Concomitant]
     Active Substance: KETOCONAZOLE
     Dosage: 2% SHAMPOO
  6. BETAMETHASONE DIPROPIONATE [Concomitant]
     Active Substance: BETAMETHASONE DIPROPIONATE
     Dosage: AUG 0.05% LOTION
  7. ALBUTEROL [Concomitant]
     Active Substance: ALBUTEROL
  8. ONDANSETRON [Concomitant]
     Active Substance: ONDANSETRON
  9. MOMETASONE FUROATE [Concomitant]
     Active Substance: MOMETASONE FUROATE
  10. LORATADINE [Concomitant]
     Active Substance: LORATADINE
  11. VITAMINS [Concomitant]
     Active Substance: VITAMINS
  12. TOFACITINIB [Concomitant]
     Active Substance: TOFACITINIB
  13. FERROUS SULFATE [Concomitant]
     Active Substance: FERROUS SULFATE
  14. DOCUSATE SODIUM [Concomitant]
     Active Substance: DOCUSATE SODIUM

REACTIONS (1)
  - Sarcoidosis [Not Recovered/Not Resolved]

NARRATIVE: CASE EVENT DATE: 20221117
